FAERS Safety Report 18883145 (Version 1)
Quarter: 2021Q1

REPORT INFORMATION
  Report Type: Spontaneous
  Country: FR (occurrence: FR)
  Receive Date: 20210212
  Receipt Date: 20210212
  Transmission Date: 20210420
  Serious: Yes (Congenital Anomaly, Other)
  Sender: FDA-Public Use
  Company Number: FR-TEVA-2021-FR-1878539

PATIENT
  Age: 0 Year
  Sex: Male

DRUGS (1)
  1. FLUOROURACILE [Suspect]
     Active Substance: FLUOROURACIL
     Indication: ACCIDENTAL EXPOSURE TO PRODUCT
     Route: 064
     Dates: start: 201910, end: 201911

REACTIONS (1)
  - Vascular neoplasm [Recovering/Resolving]

NARRATIVE: CASE EVENT DATE: 20200709
